FAERS Safety Report 4730391-3 (Version None)
Quarter: 2005Q3

REPORT INFORMATION
  Report Type: 
  Country: None (occurrence: None)
  Receive Date: 20050801
  Receipt Date: 20050719
  Transmission Date: 20060218
  Serious: Yes (Hospitalization)
  Sender: FDA-Public Use
  Company Number: US-MERCK-0507USA03187

PATIENT
  Age: 40 Year
  Sex: Female

DRUGS (1)
  1. VIOXX [Suspect]
     Route: 048

REACTIONS (23)
  - ABDOMINAL PAIN [None]
  - ACCELERATED HYPERTENSION [None]
  - ANAEMIA [None]
  - CARDIAC DISORDER [None]
  - CARDIAC FAILURE CONGESTIVE [None]
  - CATHETER RELATED INFECTION [None]
  - CHOLELITHIASIS [None]
  - DRUG HYPERSENSITIVITY [None]
  - DYSPNOEA [None]
  - FLANK PAIN [None]
  - HAEMATURIA [None]
  - HERNIA REPAIR [None]
  - HYPERTENSIVE CARDIOMYOPATHY [None]
  - INCISIONAL HERNIA REPAIR [None]
  - JUGULAR VEIN THROMBOSIS [None]
  - RENAL FAILURE CHRONIC [None]
  - RENAL HAEMORRHAGE [None]
  - RENAL TRANSPLANT [None]
  - SEPSIS [None]
  - STEAL SYNDROME [None]
  - SUBCLAVIAN VEIN THROMBOSIS [None]
  - TRANSPLANT FAILURE [None]
  - TRANSPLANT REJECTION [None]
